FAERS Safety Report 6725892-2 (Version None)
Quarter: 2010Q2

REPORT INFORMATION
  Report Type: 
  Country: None (occurrence: None)
  Receive Date: 20100514
  Receipt Date: 20100504
  Transmission Date: 20101027
  Serious: Yes (Death, Other)
  Sender: FDA-Public Use
  Company Number: US-PFIZER INC-2009290499

PATIENT
  Sex: Female

DRUGS (1)
  1. REVATIO [Suspect]
     Dosage: 20 MG, UNK

REACTIONS (4)
  - BLOOD LACTIC ACID INCREASED [None]
  - COLITIS ISCHAEMIC [None]
  - DEATH [None]
  - ISCHAEMIA [None]
